FAERS Safety Report 9585495 (Version 1)
Quarter: 2013Q4

REPORT INFORMATION
  Report Type: Spontaneous
  Country: CA (occurrence: CA)
  Receive Date: 20131003
  Receipt Date: 20131003
  Transmission Date: 20140711
  Serious: Yes (Other)
  Sender: FDA-Public Use
  Company Number: CA-ROCHE-1282930

PATIENT
  Age: 53 Year
  Sex: Female

DRUGS (10)
  1. XOLAIR [Suspect]
     Indication: ASTHMA
     Route: 058
     Dates: start: 20090326
  2. XOLAIR [Suspect]
     Dosage: EVERY FIVE TO SIX WEEKS INSTEAD OF EVERY FOUR WEEKS
     Route: 065
  3. CLARITIN [Concomitant]
  4. BUDESONIDE [Concomitant]
  5. FORMOTEROL FUMARATE [Concomitant]
  6. ALVESCO [Concomitant]
  7. VENTOLINE [Concomitant]
  8. RYTHMODAN LA [Concomitant]
  9. NEXIUM HP7 [Concomitant]
  10. DOMPERIDONE [Concomitant]

REACTIONS (6)
  - Viral infection [Recovered/Resolved]
  - Arrhythmia [Unknown]
  - Sinusitis [Unknown]
  - Abdominal discomfort [Unknown]
  - Inappropriate schedule of drug administration [Unknown]
  - Hypersensitivity [Unknown]
